FAERS Safety Report 21522527 (Version 1)
Quarter: 2022Q4

REPORT INFORMATION
  Report Type: Report from Study
  Country: US (occurrence: US)
  Receive Date: 20221029
  Receipt Date: 20221029
  Transmission Date: 20230112
  Serious: No
  Sender: FDA-Public Use
  Company Number: US-ABBVIE-4161351

PATIENT
  Sex: Female

DRUGS (1)
  1. SKYRIZI [Suspect]
     Active Substance: RISANKIZUMAB-RZAA
     Indication: Psoriasis
     Route: 058
     Dates: start: 20220302

REACTIONS (4)
  - Scab [Not Recovered/Not Resolved]
  - Pain in extremity [Recovered/Resolved]
  - Back disorder [Recovering/Resolving]
  - Influenza [Recovered/Resolved]
